FAERS Safety Report 15981951 (Version 5)
Quarter: 2019Q2

REPORT INFORMATION
  Report Type: Report from Study
  Country: HU (occurrence: HU)
  Receive Date: 20190219
  Receipt Date: 20190508
  Transmission Date: 20190711
  Serious: Yes (Death, Hospitalization)
  Sender: FDA-Public Use
  Company Number: HU-JNJFOC-20190214390

PATIENT
  Age: 67 Year
  Sex: Male
  Weight: 87 kg

DRUGS (11)
  1. STELARA [Suspect]
     Active Substance: USTEKINUMAB
     Indication: PSORIASIS
     Dosage: TOTAL NUMBER OF INJECTIONS RECEIVED : 5
     Route: 058
     Dates: start: 20171106, end: 20180924
  2. CONTRAMAL [Concomitant]
     Active Substance: TRAMADOL HYDROCHLORIDE
     Route: 065
  3. CONTROLOC [Concomitant]
     Active Substance: PANTOPRAZOLE SODIUM
     Route: 065
  4. LEVOFLOXACIN. [Concomitant]
     Active Substance: LEVOFLOXACIN
     Route: 065
  5. MILGAMMA [Concomitant]
     Route: 065
  6. ULPRIX [Concomitant]
     Active Substance: PANTOPRAZOLE SODIUM
     Route: 065
  7. TALLITON [Concomitant]
     Active Substance: CARVEDILOL
     Route: 065
  8. FURON [Concomitant]
     Active Substance: FUROSEMIDE
     Route: 065
  9. METHOTREXATE. [Concomitant]
     Active Substance: METHOTREXATE
     Indication: GASTRIC DISORDER
     Route: 065
  10. LEGALON [Concomitant]
     Active Substance: DIETARY SUPPLEMENT\HERBALS\MILK THISTLE
     Route: 065
  11. VEROSPIRON [Concomitant]
     Active Substance: SPIRONOLACTONE
     Route: 065

REACTIONS (9)
  - Haemorrhagic disorder [Unknown]
  - Arteriosclerosis [Unknown]
  - Cardiomyopathy [Unknown]
  - Bronchitis bacterial [Unknown]
  - Hydrothorax [Unknown]
  - Hepatic cirrhosis [Unknown]
  - Peritoneal haematoma [Unknown]
  - Pneumonia [Fatal]
  - Pelvic haematoma [Unknown]

NARRATIVE: CASE EVENT DATE: 20190107
